FAERS Safety Report 6704437-7 (Version None)
Quarter: 2010Q2

REPORT INFORMATION
  Report Type: 
  Country: None (occurrence: None)
  Receive Date: 20100430
  Receipt Date: 20100421
  Transmission Date: 20101027
  Serious: Yes (Hospitalization)
  Sender: FDA-Public Use
  Company Number: DE-TEVA-232282ISR

PATIENT
  Age: 93 Year
  Sex: Female

DRUGS (3)
  1. FUROSEMIDE [Suspect]
     Indication: HYPERTENSION
     Route: 048
     Dates: start: 20081001, end: 20090531
  2. FUROSEMIDE [Concomitant]
  3. FENTANYL [Interacting]
     Indication: PAIN
     Route: 062
     Dates: start: 20090421, end: 20090517

REACTIONS (1)
  - FAECALOMA [None]
